FAERS Safety Report 19079651 (Version 3)
Quarter: 2021Q2

REPORT INFORMATION
  Report Type: Spontaneous
  Country: US (occurrence: US)
  Receive Date: 20210331
  Receipt Date: 20210624
  Transmission Date: 20210717
  Serious: Yes (Hospitalization, Other)
  Sender: FDA-Public Use
  Company Number: US-ASTRAZENECA-2021A231660

PATIENT
  Age: 20251 Day
  Sex: Male
  Weight: 122.5 kg

DRUGS (43)
  1. FARXIGA [Suspect]
     Active Substance: DAPAGLIFLOZIN PROPANEDIOL
     Indication: WEIGHT DECREASED
     Route: 048
     Dates: start: 20161126
  2. PRINIVIL [Concomitant]
     Active Substance: LISINOPRIL
     Route: 048
     Dates: start: 20161126
  3. DOCUSATE SODIUM. [Concomitant]
     Active Substance: DOCUSATE SODIUM
  4. CLINDAMYCIN. [Concomitant]
     Active Substance: CLINDAMYCIN
  5. FARXIGA [Suspect]
     Active Substance: DAPAGLIFLOZIN PROPANEDIOL
     Indication: WEIGHT DECREASED
     Route: 048
     Dates: start: 20140902
  6. AUGMENTIN [Concomitant]
     Active Substance: AMOXICILLIN\CLAVULANATE POTASSIUM
  7. VANCOMYCIN [Concomitant]
     Active Substance: VANCOMYCIN
  8. TRULICITY [Concomitant]
     Active Substance: DULAGLUTIDE
  9. GLUCOPHAGE [Concomitant]
     Active Substance: METFORMIN HYDROCHLORIDE
     Route: 048
     Dates: start: 20161126
  10. AMARYL [Concomitant]
     Active Substance: GLIMEPIRIDE
     Route: 048
     Dates: start: 20161126
  11. DEXTROSE. [Concomitant]
     Active Substance: DEXTROSE
  12. INSULIN [Concomitant]
     Active Substance: INSULIN NOS
  13. HYDROMORPHONE [Concomitant]
     Active Substance: HYDROMORPHONE
  14. AMPICILLIN [Concomitant]
     Active Substance: AMPICILLIN
  15. FARXIGA [Suspect]
     Active Substance: DAPAGLIFLOZIN PROPANEDIOL
     Indication: BLOOD PRESSURE DECREASED
     Route: 048
     Dates: start: 20161126
  16. PANTOPRAZOLE [Concomitant]
     Active Substance: PANTOPRAZOLE
  17. GLYCOPYRROLATE. [Concomitant]
     Active Substance: GLYCOPYRROLATE
  18. LIDOCAINE. [Concomitant]
     Active Substance: LIDOCAINE
  19. MIDAZOLAM. [Concomitant]
     Active Substance: MIDAZOLAM
  20. VICTOZA [Concomitant]
     Active Substance: LIRAGLUTIDE
  21. FARXIGA [Suspect]
     Active Substance: DAPAGLIFLOZIN PROPANEDIOL
     Indication: BLOOD PRESSURE DECREASED
     Route: 048
     Dates: start: 20140902
  22. PRAVACHOL [Concomitant]
     Active Substance: PRAVASTATIN SODIUM
     Route: 048
     Dates: start: 20161126
  23. CINNAMON. [Concomitant]
     Active Substance: CINNAMON
     Route: 065
     Dates: start: 20161126
  24. TENORMIN [Concomitant]
     Active Substance: ATENOLOL
  25. PIPERCILLIN?TRAZOBACTUM [Concomitant]
  26. POTASSIUM CHLORIDE. [Concomitant]
     Active Substance: POTASSIUM CHLORIDE
  27. NEOSTIGMINE. [Concomitant]
     Active Substance: NEOSTIGMINE METHYLSULFATE
  28. ONDANSETRON [Concomitant]
     Active Substance: ONDANSETRON
  29. PRAVASTATIN. [Concomitant]
     Active Substance: PRAVASTATIN
  30. FARXIGA [Suspect]
     Active Substance: DAPAGLIFLOZIN PROPANEDIOL
     Indication: TYPE 2 DIABETES MELLITUS
     Route: 048
     Dates: start: 20140902
  31. FARXIGA [Suspect]
     Active Substance: DAPAGLIFLOZIN PROPANEDIOL
     Indication: TYPE 2 DIABETES MELLITUS
     Route: 048
     Dates: start: 20161126
  32. ROXICODONE [Concomitant]
     Active Substance: OXYCODONE HYDROCHLORIDE
     Dosage: 5.0MG EVERY 4 ? 6 HOURS
     Route: 048
     Dates: start: 20161126
  33. ATROPINE. [Concomitant]
     Active Substance: ATROPINE
  34. CALCIUM GLUCONATE. [Concomitant]
     Active Substance: CALCIUM GLUCONATE
  35. FENTANYL. [Concomitant]
     Active Substance: FENTANYL
  36. PLASMALYTE [Concomitant]
     Active Substance: ELECTROLYTES NOS
  37. SODIUM PHOSPHATE [Concomitant]
     Active Substance: SODIUM PHOSPHATE
  38. TIZANIDINE. [Concomitant]
     Active Substance: TIZANIDINE
  39. HEPARIN [Concomitant]
     Active Substance: HEPARIN SODIUM
  40. MAGNESIUM SULFATE. [Concomitant]
     Active Substance: MAGNESIUM SULFATE
  41. CIPROFLOXACIN. [Concomitant]
     Active Substance: CIPROFLOXACIN
  42. CIALIS [Concomitant]
     Active Substance: TADALAFIL
  43. VIAGRA [Concomitant]
     Active Substance: SILDENAFIL CITRATE

REACTIONS (9)
  - Fournier^s gangrene [Unknown]
  - Pain [Unknown]
  - Sepsis [Unknown]
  - Scrotal swelling [Unknown]
  - Perineal pain [Unknown]
  - Genital lesion [Unknown]
  - Testicular pain [Unknown]
  - Emotional distress [Unknown]
  - Rectal abscess [Unknown]

NARRATIVE: CASE EVENT DATE: 20161126
